FAERS Safety Report 9029390 (Version 2)
Quarter: 2013Q1

REPORT INFORMATION
  Report Type: Spontaneous
  Country: US (occurrence: US)
  Receive Date: 20130125
  Receipt Date: 20130214
  Transmission Date: 20140127
  Serious: Yes (Other)
  Sender: FDA-Public Use
  Company Number: PHEH2013US001993

PATIENT
  Sex: Female

DRUGS (5)
  1. DIOVAN [Suspect]
     Indication: HYPERTENSION
     Dosage: 320 MG, QD
     Route: 048
  2. DIURETICS [Concomitant]
     Dosage: UNK UKN, UNK
  3. LEVOTHYROXINE SODIUM [Concomitant]
     Dosage: UNK UKN, UNK
  4. VITAMIN B12 [Concomitant]
     Dosage: UNK UKN, UNK
  5. TRAVOPROST [Concomitant]
     Dosage: UNK UKN, UNK

REACTIONS (4)
  - Glaucoma [Unknown]
  - Cataract [Unknown]
  - Blood cholesterol abnormal [Unknown]
  - Weight decreased [Unknown]
